FAERS Safety Report 21825496 (Version 1)
Quarter: 2023Q1

REPORT INFORMATION
  Report Type: Spontaneous
  Country: US (occurrence: None)
  Receive Date: 20230105
  Receipt Date: 20230105
  Transmission Date: 20230418
  Serious: Yes (Life-Threatening, Disabling)
  Sender: FDA-Public Use
  Company Number: None

PATIENT
  Age: 74 Year
  Sex: Male
  Weight: 61.23 kg

DRUGS (4)
  1. ALBUTEROL SULFATE INHALATION SOLUTION [Suspect]
     Active Substance: ALBUTEROL SULFATE
     Indication: Chronic obstructive pulmonary disease
     Dosage: FREQUENCY : 4 TIMES A DAY;?
     Route: 055
     Dates: start: 20120101, end: 20221019
  2. ALBUTEROL SULFATE INHALATION SOLUTION [Suspect]
     Active Substance: ALBUTEROL SULFATE
     Indication: Emphysema
  3. ALBUTEROL SULFATE INHALATION SOLUTION [Suspect]
     Active Substance: ALBUTEROL SULFATE
     Indication: Bronchitis chronic
  4. ALBUTEROL SULFATE INHALATION SOLUTION [Suspect]
     Active Substance: ALBUTEROL SULFATE
     Indication: Lung disorder

REACTIONS (6)
  - Rash [None]
  - Rash [None]
  - Faeces discoloured [None]
  - Pruritus [None]
  - Infection [None]
  - Toxicity to various agents [None]

NARRATIVE: CASE EVENT DATE: 20221019
